FAERS Safety Report 5733375-1 (Version None)
Quarter: 2008Q2

REPORT INFORMATION
  Report Type: 
  Country: None (occurrence: None)
  Receive Date: 20080509
  Receipt Date: 20080506
  Transmission Date: 20081010
  Serious: Yes (Death)
  Sender: FDA-Public Use
  Company Number: US-BAYER-200814865NA

PATIENT
  Age: 18 Year
  Sex: Female
  Weight: 68 kg

DRUGS (1)
  1. YAZ [Suspect]
     Indication: DRUG USE FOR UNKNOWN INDICATION
     Route: 048
     Dates: end: 20060601

REACTIONS (5)
  - AORTIC EMBOLUS [None]
  - CARDIO-RESPIRATORY ARREST [None]
  - DYSPNOEA [None]
  - PULMONARY EMBOLISM [None]
  - RIGHT VENTRICULAR DYSFUNCTION [None]
